FAERS Safety Report 20647638 (Version 1)
Quarter: 2022Q1

REPORT INFORMATION
  Report Type: Other
  Country: JP (occurrence: JP)
  Receive Date: 20220329
  Receipt Date: 20220329
  Transmission Date: 20220424
  Serious: Yes (Other)
  Sender: FDA-Public Use
  Company Number: JP-CHUGAI-2021023742

PATIENT
  Age: 70 Year
  Sex: Male
  Weight: 50.9 kg

DRUGS (4)
  1. ATEZOLIZUMAB [Suspect]
     Active Substance: ATEZOLIZUMAB
     Indication: Non-small cell lung cancer
     Dosage: 1200 MILLIGRAM
     Route: 041
     Dates: start: 20210202, end: 20210628
  2. ABRAXANE [Suspect]
     Active Substance: PACLITAXEL
     Indication: Non-small cell lung cancer
     Dosage: 155 MILLIGRAM, QD
     Route: 041
     Dates: start: 20210202, end: 20210202
  3. ABRAXANE [Suspect]
     Active Substance: PACLITAXEL
     Dosage: 120 MILLIGRAM, QD
     Route: 041
     Dates: start: 20210412, end: 20210412
  4. CARBOPLATIN [Concomitant]
     Active Substance: CARBOPLATIN
     Indication: Non-small cell lung cancer
     Dosage: 280 MILLIGRAM
     Route: 041
     Dates: start: 20210202, end: 20210405

REACTIONS (2)
  - Pulmonary toxicity [Recovering/Resolving]
  - Neutrophil count decreased [Recovered/Resolved]

NARRATIVE: CASE EVENT DATE: 20210208
